FAERS Safety Report 24185817 (Version 3)
Quarter: 2024Q4

REPORT INFORMATION
  Report Type: Spontaneous
  Country: JP (occurrence: JP)
  Receive Date: 20240807
  Receipt Date: 20241220
  Transmission Date: 20250115
  Serious: Yes (Life-Threatening, Other)
  Sender: BRISTOL-MYERS SQUIBB COMPANY
  Company Number: JP-BRISTOL-MYERS SQUIBB COMPANY-2024-120456

PATIENT
  Age: 57 Year
  Sex: Female

DRUGS (2)
  1. ABECMA [Suspect]
     Active Substance: IDECABTAGENE VICLEUCEL
     Indication: Product used for unknown indication
  2. UNSPECIFIED INGREDIENT [Concomitant]
     Active Substance: UNSPECIFIED INGREDIENT
     Indication: Cytokine release syndrome

REACTIONS (7)
  - Cardiac arrest [Unknown]
  - Pancreatitis acute [Unknown]
  - Cytokine release syndrome [Recovering/Resolving]
  - Tumour lysis syndrome [Unknown]
  - Immune effector cell-associated neurotoxicity syndrome [Unknown]
  - Candida infection [Unknown]
  - Blood immunoglobulin G decreased [Unknown]
